FAERS Safety Report 4691290-9 (Version None)
Quarter: 2005Q2

REPORT INFORMATION
  Report Type: 
  Country: None (occurrence: None)
  Receive Date: 20050610
  Receipt Date: 20050601
  Transmission Date: 20051028
  Serious: Yes (Hospitalization)
  Sender: FDA-Public Use
  Company Number: HQWYE040215APR05

PATIENT
  Age: 52 Year
  Sex: Female

DRUGS (16)
  1. RAPAMUNE [Suspect]
     Indication: PROPHYLAXIS AGAINST TRANSPLANT REJECTION
     Dosage: 1 MG 1X PER 1 DAY, ORAL
     Route: 048
     Dates: start: 20040323
  2. MYCOPHENOLATE MOFETIL (MYCOPHENOLATE MOFETIL, ) [Suspect]
     Indication: PROPHYLAXIS AGAINST TRANSPLANT REJECTION
     Dosage: 250 MG 2X PER 1 DAY, ORAL
     Route: 048
     Dates: start: 20030910
  3. PREDNISONE (PREDNISONE, ) [Suspect]
     Indication: PROPHYLAXIS AGAINST TRANSPLANT REJECTION
     Dosage: 2.5 MG 1X PER 1 DAY, ORAL
     Route: 048
     Dates: start: 20030910
  4. BACTRIM [Concomitant]
  5. NEURONTIN [Concomitant]
  6. AUGMENTIN (AMOXICILLIN SODIUM/CLAVULANATE POTASSIUM)) [Concomitant]
  7. ASPIRIN [Concomitant]
  8. NORVASC [Concomitant]
  9. PLETAL [Concomitant]
  10. INSULIN HUMULIN 70/30 (INSULIN HUMAN/INSULIN HUMAN INJECTION, ISOPHANE [Concomitant]
  11. SILVADENE (FULFADIAZINE SILVER0 [Concomitant]
  12. METOPROLOL TARTRATE [Concomitant]
  13. EPIVIR [Concomitant]
  14. PEPCID [Concomitant]
  15. TOPRAL USLTOPRIDE) [Concomitant]
  16. IMDUR (SOSORBIDE MONONITRATE) [Concomitant]

REACTIONS (13)
  - ARTERIOVENOUS FISTULA [None]
  - CELLULITIS [None]
  - CHEST PAIN [None]
  - EXOSTOSIS [None]
  - FOOT FRACTURE [None]
  - INFECTION [None]
  - NEUROPATHIC ARTHROPATHY [None]
  - OEDEMA PERIPHERAL [None]
  - PAIN IN EXTREMITY [None]
  - SKIN ULCER [None]
  - SUBCLAVIAN VEIN THROMBOSIS [None]
  - ULTRASOUND SCAN ABNORMAL [None]
  - WHITE BLOOD CELL COUNT DECREASED [None]
